FAERS Safety Report 12693705 (Version 1)
Quarter: 2016Q3

REPORT INFORMATION
  Report Type: Spontaneous
  Country: FR (occurrence: FR)
  Receive Date: 20160829
  Receipt Date: 20160829
  Transmission Date: 20161109
  Serious: Yes (Hospitalization)
  Sender: FDA-Public Use
  Company Number: FR-PFIZER INC-2016397162

PATIENT
  Age: 42 Year
  Sex: Female

DRUGS (3)
  1. XANAX [Suspect]
     Active Substance: ALPRAZOLAM
     Dosage: 3.75 MG, SINGLE
     Route: 048
     Dates: start: 20160325, end: 20160325
  2. ZOLPIDEM [Suspect]
     Active Substance: ZOLPIDEM\ZOLPIDEM TARTRATE
     Dosage: 5 DF, SINGLE
     Route: 048
     Dates: start: 20160325, end: 20160325
  3. LEXOMIL ROCHE [Suspect]
     Active Substance: BROMAZEPAM
     Dosage: 10 DF, SINGLE
     Route: 048
     Dates: start: 20160325, end: 20160325

REACTIONS (2)
  - Toxicity to various agents [Recovered/Resolved]
  - Poisoning deliberate [Recovered/Resolved]

NARRATIVE: CASE EVENT DATE: 20160325
